FAERS Safety Report 8459478-9 (Version None)
Quarter: 2012Q2

REPORT INFORMATION
  Report Type: 
  Country: None (occurrence: None)
  Receive Date: 20120622
  Receipt Date: 20120504
  Transmission Date: 20120825
  Serious: Yes (Life-Threatening)
  Sender: FDA-Public Use
  Company Number: TR-JNJFOC-20120609904

PATIENT
  Sex: Female

DRUGS (4)
  1. METOCLOPRAMIDE HCL [Suspect]
     Indication: PRODUCT USED FOR UNKNOWN INDICATION
     Dosage: TOOK 20 TABLETS AT ONCE
     Route: 048
     Dates: start: 20120416, end: 20120416
  2. CIRRUS [Suspect]
     Indication: PRODUCT USED FOR UNKNOWN INDICATION
     Dosage: TOOK 8 TABLETS AT ONCE
     Route: 048
     Dates: start: 20120416, end: 20120416
  3. CIRRUS [Suspect]
     Route: 048
  4. URISPAS [Suspect]
     Indication: PRODUCT USED FOR UNKNOWN INDICATION
     Dosage: TOOK 25 TABLETS AT ONCE
     Route: 048
     Dates: start: 20120416, end: 20120416

REACTIONS (2)
  - SUICIDE ATTEMPT [None]
  - INTENTIONAL OVERDOSE [None]
